FAERS Safety Report 4658144-5 (Version None)
Quarter: 2005Q2

REPORT INFORMATION
  Report Type: 
  Country: None (occurrence: None)
  Receive Date: 20050509
  Receipt Date: 20050428
  Transmission Date: 20051028
  Serious: Yes (Other)
  Sender: FDA-Public Use
  Company Number: 2005063207

PATIENT
  Age: 48 Year
  Sex: Female
  Weight: 140.6151 kg

DRUGS (12)
  1. CELEBREX [Suspect]
     Indication: ARTHRALGIA
     Dosage: 400 MG (200 MG, 2 IN 1 D), ORAL
     Route: 048
  2. BEXTRA [Suspect]
     Indication: ARTHRALGIA
     Dosage: 40 MG (20 MG, 2 IN 1 D), ORAL
     Route: 048
  3. PAROXETINE HCL [Concomitant]
  4. FLUOXETINE HCL [Concomitant]
  5. METFORMIN HYDROCHLORIDE/ROSIGLITAZONE (METFORMIN HYDROCHLORIDE, ROSIGL [Concomitant]
  6. LIPITOR (ATORVASTATIN) [Concomitant]
  7. FAMOTIDINE [Concomitant]
  8. WARFARIN SODIUM [Concomitant]
  9. TRAZODONE HCL [Concomitant]
  10. CYCLOBENZAPRINE HYDROCHLORIDE [Concomitant]
  11. VICODIN [Concomitant]
  12. OXYCODONE HYDROCHLORIDE AND ACETAMINOPHEN [Concomitant]

REACTIONS (8)
  - CARTILAGE INJURY [None]
  - DRUG INEFFECTIVE [None]
  - FIBROMYALGIA [None]
  - MENISCUS LESION [None]
  - PAIN [None]
  - SELF-MEDICATION [None]
  - THROMBOSIS [None]
  - TREATMENT NONCOMPLIANCE [None]
